FAERS Safety Report 7064816-8 (Version None)
Quarter: 2010Q4

REPORT INFORMATION
  Report Type: 
  Country: None (occurrence: None)
  Receive Date: 20101022
  Receipt Date: 20101022
  Transmission Date: 20110411
  Serious: Yes (Other)
  Sender: FDA-Public Use
  Company Number: None

PATIENT
  Age: 53 Year
  Sex: Female
  Weight: 70.3075 kg

DRUGS (1)
  1. AZITHROMYCIN [Suspect]
     Indication: CAMPYLOBACTER INFECTION
     Dosage: 1 TABLET ONE A DAY PO
     Route: 048
     Dates: start: 20101013, end: 20101015

REACTIONS (2)
  - HYPERSENSITIVITY [None]
  - SWOLLEN TONGUE [None]
